FAERS Safety Report 19086488 (Version 1)
Quarter: 2021Q2

REPORT INFORMATION
  Report Type: Spontaneous
  Country: JP (occurrence: JP)
  Receive Date: 20210402
  Receipt Date: 20210402
  Transmission Date: 20210717
  Serious: Yes (Other)
  Sender: FDA-Public Use
  Company Number: JP-CELGENEUS-JPN-20210308101

PATIENT
  Age: 81 Year
  Sex: Female

DRUGS (3)
  1. FAVIPIRAVIR [Concomitant]
     Active Substance: FAVIPIRAVIR
     Indication: PRODUCT USED FOR UNKNOWN INDICATION
     Route: 065
  2. VIDAZA [Suspect]
     Active Substance: AZACITIDINE
     Indication: ACUTE MYELOID LEUKAEMIA
     Route: 065
  3. NAFAMOSTAT [Concomitant]
     Active Substance: NAFAMOSTAT
     Indication: PRODUCT USED FOR UNKNOWN INDICATION
     Route: 065

REACTIONS (1)
  - COVID-19 [Unknown]
